FAERS Safety Report 12566901 (Version 3)
Quarter: 2016Q3

REPORT INFORMATION
  Report Type: Report from Study
  Country: DE (occurrence: DE)
  Receive Date: 20160718
  Receipt Date: 20160818
  Transmission Date: 20161109
  Serious: Yes (Death, Hospitalization, Other)
  Sender: FDA-Public Use
  Company Number: DE-ABBVIE-16K-062-1675717-00

PATIENT
  Age: 71 Year
  Sex: Female

DRUGS (9)
  1. SPASMEX [Concomitant]
     Active Substance: TROSPIUM CHLORIDE
     Indication: PRODUCT USED FOR UNKNOWN INDICATION
  2. PANTOPRAZOL [Concomitant]
     Active Substance: PANTOPRAZOLE SODIUM
     Indication: PRODUCT USED FOR UNKNOWN INDICATION
  3. VITAMIN B12 [Concomitant]
     Active Substance: CYANOCOBALAMIN
     Indication: PRODUCT USED FOR UNKNOWN INDICATION
  4. AZILECT [Concomitant]
     Active Substance: RASAGILINE MESYLATE
     Indication: PRODUCT USED FOR UNKNOWN INDICATION
  5. GASTROZEPIN [Concomitant]
     Active Substance: PIRENZEPINE HYDROCHLORIDE
     Indication: PRODUCT USED FOR UNKNOWN INDICATION
  6. FOLIC ACID. [Concomitant]
     Active Substance: FOLIC ACID
     Indication: PRODUCT USED FOR UNKNOWN INDICATION
  7. DUODOPA [Suspect]
     Active Substance: CARBIDOPA\LEVODOPA
     Indication: PARKINSON^S DISEASE
     Dosage: MD 10.5ML, CRD 4.2ML/H, ED 1.5ML
     Route: 050
     Dates: start: 20150903
  8. MADOPAR [Concomitant]
     Active Substance: BENSERAZIDE HYDROCHLORIDE\LEVODOPA
     Indication: PRODUCT USED FOR UNKNOWN INDICATION
  9. REMERGIL [Concomitant]
     Active Substance: MIRTAZAPINE
     Indication: PRODUCT USED FOR UNKNOWN INDICATION

REACTIONS (19)
  - Staphylococcal infection [Unknown]
  - Fall [Unknown]
  - Circulatory collapse [Fatal]
  - Hyporeflexia [Unknown]
  - Necrosis [Unknown]
  - Dysarthria [Unknown]
  - General physical health deterioration [Unknown]
  - Anaemia [Unknown]
  - White blood cell count increased [Recovered/Resolved]
  - Haemoglobin decreased [Unknown]
  - Aspiration [Unknown]
  - C-reactive protein increased [Unknown]
  - Epilepsy [Not Recovered/Not Resolved]
  - Pneumonia [Unknown]
  - Blood creatinine decreased [Recovered/Resolved]
  - Hypokalaemia [Recovered/Resolved]
  - Decubitus ulcer [Not Recovered/Not Resolved]
  - Device dislocation [Unknown]
  - Platelet count increased [Unknown]

NARRATIVE: CASE EVENT DATE: 201607
